FAERS Safety Report 16842769 (Version 1)
Quarter: 2019Q3

REPORT INFORMATION
  Report Type: Spontaneous
  Country: JP (occurrence: JP)
  Receive Date: 20190924
  Receipt Date: 20190924
  Transmission Date: 20191005
  Serious: Yes (Other)
  Sender: FDA-Public Use
  Company Number: JP-TEVA-2019-JP-006066J

PATIENT
  Sex: Male

DRUGS (1)
  1. CERCINE [Suspect]
     Active Substance: DIAZEPAM
     Indication: PRODUCT USED FOR UNKNOWN INDICATION
     Dosage: DOSAGE IS UNKNOWN
     Route: 048

REACTIONS (6)
  - Poor quality sleep [Unknown]
  - Rapid eye movements sleep abnormal [Unknown]
  - Hallucination, auditory [Unknown]
  - Withdrawal syndrome [Unknown]
  - Hallucination [Unknown]
  - Delirium [Unknown]
